FAERS Safety Report 8128304-X (Version None)
Quarter: 2012Q1

REPORT INFORMATION
  Report Type: 
  Country: None (occurrence: None)
  Receive Date: 20120210
  Receipt Date: 20120130
  Transmission Date: 20120608
  Serious: Yes (Other)
  Sender: FDA-Public Use
  Company Number: JP-NAPPMUNDI-MAG-2011-0001981

PATIENT
  Sex: Female

DRUGS (10)
  1. CANDESARTAN CILEXETIL [Concomitant]
     Route: 048
  2. FAMOTIDINE [Suspect]
     Indication: PRODUCT USED FOR UNKNOWN INDICATION
     Dosage: UNK
     Route: 048
     Dates: end: 20111019
  3. HALCION [Concomitant]
     Indication: PRODUCT USED FOR UNKNOWN INDICATION
     Dosage: UNK
     Route: 048
     Dates: start: 20111021, end: 20111021
  4. GOSHAJINKIGAN [Concomitant]
     Dosage: UNK
     Route: 048
     Dates: end: 20111025
  5. UFT [Concomitant]
     Indication: COLON CANCER
     Dosage: UNK
     Route: 048
     Dates: end: 20111018
  6. OXYCODONE HCL [Suspect]
     Indication: CANCER PAIN
     Dosage: 50 MG, DAILY
     Route: 048
     Dates: start: 20111014, end: 20111026
  7. GOODMIN [Concomitant]
     Indication: PRODUCT USED FOR UNKNOWN INDICATION
     Dosage: UNK
     Route: 048
     Dates: start: 20111021, end: 20111021
  8. UZEL [Concomitant]
     Indication: COLON CANCER
     Dosage: UNK
     Route: 048
     Dates: end: 20111018
  9. METHYCOOL [Concomitant]
     Dosage: UNK
     Route: 048
     Dates: end: 20111025
  10. OXYCODONE HCL [Suspect]
     Indication: CANCER PAIN
     Dosage: 7.5 MG, DAILY
     Route: 048
     Dates: start: 20111014, end: 20111026

REACTIONS (1)
  - DELIRIUM [None]
